FAERS Safety Report 6126817-3 (Version None)
Quarter: 2009Q1

REPORT INFORMATION
  Report Type: 
  Country: None (occurrence: None)
  Receive Date: 20090320
  Receipt Date: 20090305
  Transmission Date: 20090719
  Serious: Yes (Other)
  Sender: FDA-Public Use
  Company Number: MA-AMGEN-US337241

PATIENT
  Age: 41 Year
  Sex: Female

DRUGS (4)
  1. ENBREL [Suspect]
     Indication: RHEUMATOID ARTHRITIS
     Route: 065
     Dates: start: 20050601, end: 20060101
  2. METHOTREXATE [Concomitant]
     Indication: RHEUMATOID ARTHRITIS
     Dosage: UNKNOWN
     Route: 065
  3. CORTICOSTEROID NOS [Concomitant]
     Indication: RHEUMATOID ARTHRITIS
     Route: 065
  4. CORTICOSTEROID NOS [Concomitant]
     Route: 065
     Dates: start: 20060601

REACTIONS (5)
  - CONDITION AGGRAVATED [None]
  - CUTANEOUS LUPUS ERYTHEMATOSUS [None]
  - HIP SURGERY [None]
  - RHEUMATOID ARTHRITIS [None]
  - SKIN INFECTION [None]
